FAERS Safety Report 4497081-6 (Version None)
Quarter: 2004Q4

REPORT INFORMATION
  Report Type: 
  Country: None (occurrence: None)
  Receive Date: 20041110
  Receipt Date: 20041102
  Transmission Date: 20050328
  Serious: Yes (Other)
  Sender: FDA-Public Use
  Company Number: US-JNJFOC-20041101080

PATIENT
  Sex: Female
  Weight: 64.41 kg

DRUGS (4)
  1. REMICADE [Suspect]
     Indication: CROHN'S DISEASE
     Route: 042
  2. ASALENT [Concomitant]
     Indication: CROHN'S DISEASE
  3. DARVOCET [Concomitant]
  4. DARVOCET [Concomitant]
     Indication: CROHN'S DISEASE

REACTIONS (1)
  - SYSTEMIC LUPUS ERYTHEMATOSUS [None]
